FAERS Safety Report 12255856 (Version 1)
Quarter: 2016Q2

REPORT INFORMATION
  Report Type: Spontaneous
  Country: None (occurrence: None)
  Receive Date: 20160411
  Receipt Date: 20160411
  Transmission Date: 20160815
  Serious: No
  Sender: FDA-Public Use
  Company Number: None

PATIENT
  Age: 53 Year
  Sex: Male

DRUGS (1)
  1. TASIGNA [Suspect]
     Active Substance: NILOTINIB
     Dosage: 150 2BID ORAL?
     Route: 048

REACTIONS (5)
  - Memory impairment [None]
  - Arthralgia [None]
  - Fatigue [None]
  - Pruritus [None]
  - Constipation [None]

NARRATIVE: CASE EVENT DATE: 20160405
